FAERS Safety Report 5965968-0 (Version None)
Quarter: 2008Q4

REPORT INFORMATION
  Report Type: 
  Country: None (occurrence: None)
  Receive Date: 20081121
  Receipt Date: 20081121
  Transmission Date: 20090506
  Serious: Yes (Hospitalization)
  Sender: FDA-Public Use
  Company Number: None

PATIENT
  Age: 82 Year
  Sex: Male
  Weight: 80.91 kg

DRUGS (1)
  1. ACETAZOLAMIDE [Suspect]
     Dosage: 500 MG BID PO
     Route: 048
     Dates: start: 20080331, end: 20081008

REACTIONS (4)
  - CONDITION AGGRAVATED [None]
  - CONFUSIONAL STATE [None]
  - DEMENTIA [None]
  - URINARY TRACT INFECTION [None]
